FAERS Safety Report 5044757-8 (Version None)
Quarter: 2006Q3

REPORT INFORMATION
  Report Type: 
  Country: None (occurrence: None)
  Receive Date: 20060707
  Receipt Date: 20060627
  Transmission Date: 20061208
  Serious: Yes (Hospitalization)
  Sender: FDA-Public Use
  Company Number: CA-JNJFOC-20050101097

PATIENT
  Age: 77 Year
  Sex: Female
  Weight: 54.43 kg

DRUGS (8)
  1. DURAGESIC-100 [Suspect]
     Indication: BACK PAIN
     Dosage: ONE HALF OF A 25 UG/HR PATCH, 1 IN 72 HOURS.
     Route: 062
     Dates: start: 20040310
  2. DILTIAZEM CD [Concomitant]
  3. COMBIVENT [Concomitant]
     Dosage: TWO PUFFS EVERY SIX HOURS.
     Route: 055
  4. ADVAIR DISKUS 100/50 [Concomitant]
     Dosage: 250 UG, TWO PUFFS TWICE DAILY.
     Route: 055
  5. PRAVASTATIN [Concomitant]
  6. NITROGLYCERIN [Concomitant]
     Route: 062
  7. ASPIRIN [Concomitant]
     Route: 048
  8. VITAMIN B-12 [Concomitant]

REACTIONS (9)
  - ASTHENIA [None]
  - COMA [None]
  - LOSS OF CONSCIOUSNESS [None]
  - MYOCARDIAL INFARCTION [None]
  - NEPHROLITHIASIS [None]
  - NIGHTMARE [None]
  - RESPIRATORY FAILURE [None]
  - WEIGHT DECREASED [None]
  - WRONG TECHNIQUE IN DRUG USAGE PROCESS [None]
